FAERS Safety Report 9543790 (Version 1)
Quarter: 2013Q3

REPORT INFORMATION
  Report Type: Spontaneous
  Country: US (occurrence: US)
  Receive Date: 20130923
  Receipt Date: 20130923
  Transmission Date: 20140515
  Serious: Yes (Other)
  Sender: FDA-Public Use
  Company Number: PHEH2013US018916

PATIENT
  Sex: 0

DRUGS (2)
  1. AFINITOR [Suspect]
  2. AROMASIN [Concomitant]

REACTIONS (5)
  - Appendicitis [Unknown]
  - Colitis [Unknown]
  - Acne [Unknown]
  - Diarrhoea [Unknown]
  - Abdominal pain [Unknown]
